FAERS Safety Report 9627966 (Version 1)
Quarter: 2013Q4

REPORT INFORMATION
  Report Type: Spontaneous
  Country: GB (occurrence: GB)
  Receive Date: 20131016
  Receipt Date: 20131016
  Transmission Date: 20140711
  Serious: Yes (Other)
  Sender: FDA-Public Use
  Company Number: GB-ACTAVIS-2013-18679

PATIENT
  Age: 70 Year
  Sex: Male

DRUGS (7)
  1. RISEDRONATE (UNKNOWN) [Suspect]
     Indication: BONE DENSITY ABNORMAL
     Dosage: MAINTAINING BONE DENSITY
     Route: 065
     Dates: start: 20130804, end: 20130804
  2. ALENDRONIC ACID (UNKNOWN) [Suspect]
     Indication: PRODUCT USED FOR UNKNOWN INDICATION
     Dosage: UNK
     Route: 065
  3. BENDROFLUMETHIAZIDE [Concomitant]
     Indication: FLUID RETENTION
     Dosage: 2.5 MG, UNKNOWN
     Route: 065
  4. ADCAL                              /00751519/ [Concomitant]
     Indication: CALCIUM DEFICIENCY
     Dosage: 2 DF, DAILY
     Route: 065
  5. GLUCOSAMINE SULPHATE [Concomitant]
     Indication: PRODUCT USED FOR UNKNOWN INDICATION
     Dosage: UNK
     Route: 065
  6. PARACETAMOL [Concomitant]
     Indication: PRODUCT USED FOR UNKNOWN INDICATION
     Dosage: AT NIGHT
     Route: 065
  7. PREDNISOLONE [Concomitant]
     Indication: RHEUMATOID ARTHRITIS
     Dosage: 2 X 5MG
     Route: 065

REACTIONS (7)
  - Conjunctivitis [Not Recovered/Not Resolved]
  - Eye disorder [Not Recovered/Not Resolved]
  - Oral mucosal exfoliation [Recovered/Resolved]
  - Melanocytic naevus [Recovered/Resolved]
  - Erythema [Recovered/Resolved]
  - Scab [Recovered/Resolved]
  - Oral pain [Recovered/Resolved]
